FAERS Safety Report 16930048 (Version 1)
Quarter: 2019Q4

REPORT INFORMATION
  Report Type: Spontaneous
  Country: US (occurrence: US)
  Receive Date: 20191017
  Receipt Date: 20191017
  Transmission Date: 20200122
  Serious: Yes (Death)
  Sender: FDA-Public Use
  Company Number: US-SA-2019SA287456

PATIENT
  Age: 54 Year
  Sex: Female

DRUGS (1)
  1. CORTIZONE 10 [Suspect]
     Active Substance: HYDROCORTISONE

REACTIONS (1)
  - Cardiomegaly [Fatal]
